FAERS Safety Report 4852750-0 (Version None)
Quarter: 2005Q4

REPORT INFORMATION
  Report Type: 
  Country: None (occurrence: None)
  Receive Date: 20051125
  Receipt Date: 20050309
  Transmission Date: 20060501
  Serious: Yes (Hospitalization)
  Sender: FDA-Public Use
  Company Number: HQWYE007010MAR05

PATIENT
  Age: 40 Year
  Sex: Male

DRUGS (1)
  1. ZOSYN [Suspect]
     Indication: OSTEOMYELITIS
     Dosage: 3.375 G 1X PER 6 HR, INTRAVENOUS
     Route: 042
     Dates: start: 20050223, end: 20050309

REACTIONS (1)
  - AGRANULOCYTOSIS [None]
